FAERS Safety Report 4273846-0 (Version None)
Quarter: 2004Q1

REPORT INFORMATION
  Report Type: 
  Country: None (occurrence: None)
  Receive Date: 20040115
  Receipt Date: 20031229
  Transmission Date: 20041129
  Serious: Yes (Other)
  Sender: FDA-Public Use
  Company Number: USA030332577

PATIENT
  Age: 60 Year
  Sex: Female
  Weight: 55 kg

DRUGS (5)
  1. HUMALOG [Suspect]
     Indication: DIABETES MELLITUS
     Dates: start: 20000101
  2. HUMULIN N [Suspect]
     Indication: DIABETES MELLITUS
     Dosage: 27 U/DAY
  3. HUMULIN R [Suspect]
     Indication: DIABETES MELLITUS
  4. NOVOLIN N [Concomitant]
  5. NOVOLIN R [Concomitant]

REACTIONS (7)
  - BLOOD GLUCOSE DECREASED [None]
  - BLOOD GLUCOSE FLUCTUATION [None]
  - DIZZINESS [None]
  - EYE HAEMORRHAGE [None]
  - FEELING ABNORMAL [None]
  - PHARMACEUTICAL PRODUCT COMPLAINT [None]
  - VISION BLURRED [None]
